FAERS Safety Report 9936805 (Version 1)
Quarter: 2014Q1

REPORT INFORMATION
  Report Type: Spontaneous
  Country: US (occurrence: None)
  Receive Date: 20140109
  Receipt Date: 20140109
  Transmission Date: 20141002
  Serious: Yes (Other)
  Sender: FDA-Public Use
  Company Number: 367270

PATIENT
  Age: 62 Year
  Sex: Female
  Weight: 87.1 kg

DRUGS (4)
  1. LEVEMIR [Suspect]
     Indication: TYPE 2 DIABETES MELLITUS
     Route: 058
     Dates: start: 2012, end: 201212
  2. HUMALOG (INSULIN LISPRO) [Suspect]
     Indication: TYPE 2 DIABETES MELLITUS
     Route: 058
     Dates: start: 2010, end: 201212
  3. AMLODIPINE (AMLODIPINE) [Concomitant]
  4. LYRICA (PREGABALIN) [Concomitant]

REACTIONS (1)
  - Hyperglycaemic unconsciousness [None]
